FAERS Safety Report 4997529-4 (Version None)
Quarter: 2006Q2

REPORT INFORMATION
  Report Type: 
  Country: None (occurrence: None)
  Receive Date: 20060509
  Receipt Date: 20060406
  Transmission Date: 20061013
  Serious: Yes (Life-Threatening, Hospitalization)
  Sender: FDA-Public Use
  Company Number: FR-MERCK-0604FRA00028

PATIENT
  Age: 67 Year
  Sex: Female

DRUGS (2)
  1. VIOXX [Suspect]
     Indication: OSTEOARTHRITIS
     Route: 048
     Dates: start: 20020701, end: 20031201
  2. VIOXX [Suspect]
     Route: 048
     Dates: start: 20031201, end: 20040215

REACTIONS (6)
  - CARDIOGENIC SHOCK [None]
  - CORONARY ARTERY STENOSIS [None]
  - CORONARY ARTERY THROMBOSIS [None]
  - HAEMODYNAMIC INSTABILITY [None]
  - MYOCARDIAL INFARCTION [None]
  - VENTRICULAR SEPTAL DEFECT [None]
